FAERS Safety Report 5981273-0 (Version None)
Quarter: 2008Q4

REPORT INFORMATION
  Report Type: 
  Country: None (occurrence: None)
  Receive Date: 20081205
  Receipt Date: 20081126
  Transmission Date: 20090506
  Serious: Yes (Other)
  Sender: FDA-Public Use
  Company Number: BR-JNJFOC-20081200442

PATIENT
  Age: 53 Year
  Sex: Male
  Weight: 92 kg

DRUGS (6)
  1. REMICADE [Suspect]
     Route: 042
  2. REMICADE [Suspect]
     Route: 042
  3. REMICADE [Suspect]
     Indication: RHEUMATOID ARTHRITIS
     Route: 042
  4. METHOTREXATE [Concomitant]
     Dosage: 5MG IN MORNING, 5MG IN AFTERNOON, 5MG ON FOLLOWING DAY; ONCE WEEKLY
  5. DEFLAZACORT [Concomitant]
  6. NIMESULIDE [Concomitant]

REACTIONS (6)
  - ALOPECIA [None]
  - DISTURBANCE IN ATTENTION [None]
  - MEMORY IMPAIRMENT [None]
  - MYALGIA [None]
  - OEDEMA PERIPHERAL [None]
  - WEIGHT INCREASED [None]
